FAERS Safety Report 10243963 (Version 1)
Quarter: 2014Q2

REPORT INFORMATION
  Report Type: Spontaneous
  Country: CA (occurrence: None)
  Receive Date: 20140616
  Receipt Date: 20140616
  Transmission Date: 20141212
  Serious: Yes (Other)
  Sender: FDA-Public Use
  Company Number: METZ20140007

PATIENT
  Age: 15 Year
  Sex: Female

DRUGS (2)
  1. METHIMAZOLE TABLETS (THIAMAZOLE) (10 MILLIGRAM, TABLETS) (THIAMAZOLE) [Suspect]
     Indication: HYPERTHYROIDISM
     Route: 048
  2. METHIMAZOLE TABLETS (THIAMAZOLE) (10 MILLIGRAM, TABLETS) (THIAMAZOLE) [Suspect]
     Indication: BASEDOW^S DISEASE
     Route: 048

REACTIONS (3)
  - Hypersensitivity [None]
  - Anaphylactic reaction [None]
  - Angioedema [None]
